FAERS Safety Report 7802427-4 (Version None)
Quarter: 2011Q4

REPORT INFORMATION
  Report Type: 
  Country: None (occurrence: None)
  Receive Date: 20111007
  Receipt Date: 20110928
  Transmission Date: 20120403
  Serious: Yes (Hospitalization, Other)
  Sender: FDA-Public Use
  Company Number: GB-PERRIGO-11GB007666

PATIENT
  Age: 43 Year
  Sex: Male

DRUGS (2)
  1. IBUPROFEN [Suspect]
     Indication: PRODUCT USED FOR UNKNOWN INDICATION
     Dosage: UNK
     Route: 048
  2. DEPAKOTE [Suspect]
     Indication: EPILEPSY
     Dosage: UNK UNK, SINGLE
     Route: 065

REACTIONS (12)
  - HYPERAMMONAEMIC ENCEPHALOPATHY [None]
  - BLOOD GLUCOSE DECREASED [None]
  - HYPERAMMONAEMIA [None]
  - METABOLIC ACIDOSIS [None]
  - HYPERNATRAEMIA [None]
  - OVERDOSE [None]
  - THROMBOCYTOPENIA [None]
  - ALANINE AMINOTRANSFERASE INCREASED [None]
  - ANION GAP INCREASED [None]
  - BLOOD OSMOLARITY INCREASED [None]
  - RESPIRATORY ALKALOSIS [None]
  - HYPOCALCAEMIA [None]
